FAERS Safety Report 4571482-X (Version None)
Quarter: 2005Q1

REPORT INFORMATION
  Report Type: 
  Country: None (occurrence: None)
  Receive Date: 20050207
  Receipt Date: 20050128
  Transmission Date: 20050727
  Serious: Yes (Other)
  Sender: FDA-Public Use
  Company Number: PHEH2005US01428

PATIENT
  Age: 55 Year
  Sex: Female
  Weight: 80 kg

DRUGS (5)
  1. ZELNORM [Suspect]
     Indication: IRRITABLE BOWEL SYNDROME
     Dosage: 6 MG, BID PRN
     Route: 048
     Dates: start: 20050108
  2. CELEBREX [Concomitant]
     Indication: PAIN
     Dates: end: 20050127
  3. HYDROCHLOROTHIAZIDE [Concomitant]
  4. DEXTROPROPOXYPHENE NAPSILATE [Concomitant]
     Indication: PAIN
     Dosage: UNK, PRN
  5. STEROIDS NOS [Concomitant]

REACTIONS (3)
  - OEDEMA PERIPHERAL [None]
  - SWELLING [None]
  - WEIGHT INCREASED [None]
